FAERS Safety Report 25971808 (Version 1)
Quarter: 2025Q4

REPORT INFORMATION
  Report Type: Spontaneous
  Country: US (occurrence: US)
  Receive Date: 20251029
  Receipt Date: 20251029
  Transmission Date: 20260117
  Serious: Yes (Other)
  Sender: LUPIN
  Company Number: US-MLMSERVICE-20251006-PI670014-00129-1

PATIENT
  Age: 25 Year
  Sex: Male

DRUGS (1)
  1. DOXYCYCLINE [Suspect]
     Active Substance: DOXYCYCLINE
     Indication: Confluent and reticulate papillomatosis
     Dosage: 100 MILLIGRAM, BID
     Route: 065

REACTIONS (1)
  - Abdominal discomfort [Unknown]
